FAERS Safety Report 9877730 (Version 1)
Quarter: 2014Q1

REPORT INFORMATION
  Report Type: Spontaneous
  Country: US (occurrence: None)
  Receive Date: 20140204
  Receipt Date: 20140204
  Transmission Date: 20141002
  Serious: Yes (Hospitalization, Other)
  Sender: FDA-Public Use
  Company Number: AUR-APL-2014-01115

PATIENT
  Age: 50 Year
  Sex: Female
  Weight: 76.19 kg

DRUGS (9)
  1. ATENOLOL [Suspect]
     Indication: BLOOD PRESSURE
  2. LISINOPRIL [Suspect]
     Indication: BLOOD PRESSURE
  3. NEXIUM (ESOMEPRAZOLE MAGNESIUM) [Suspect]
     Indication: GASTROOESOPHAGEAL REFLUX DISEASE
     Route: 048
  4. NEXIUM (ESOMEPRAZOLE MAGNESIUM) [Suspect]
     Indication: DYSPEPSIA
     Route: 048
  5. NEXIUM (ESOMEPRAZOLE MAGNESIUM) [Suspect]
     Route: 048
  6. ASPIRIN (ACETYLSALICYLIC ACID) [Concomitant]
  7. AMLODIPINE (AMLODIPINE) [Concomitant]
  8. FENOFIBRATE (FENOFIBRATE) [Concomitant]
  9. METFORMIN (METFORMIN) [Concomitant]

REACTIONS (6)
  - Drug dose omission [None]
  - Myocardial infarction [None]
  - Diabetes mellitus [None]
  - Blood cholesterol increased [None]
  - Pain [None]
  - Intentional drug misuse [None]
